FAERS Safety Report 17188609 (Version 1)
Quarter: 2019Q4

REPORT INFORMATION
  Report Type: Spontaneous
  Country: US (occurrence: US)
  Receive Date: 20191222
  Receipt Date: 20191222
  Transmission Date: 20200122
  Serious: No
  Sender: FDA-Public Use
  Company Number: US-ACORDA-ACO_161976_2019

PATIENT
  Age: 72 Year
  Sex: Male
  Weight: 88.44 kg

DRUGS (2)
  1. CARBIDOPA AND LEVODOPA [Concomitant]
     Active Substance: CARBIDOPA\LEVODOPA
     Indication: PRODUCT USED FOR UNKNOWN INDICATION
     Dosage: 22 MG Q3 HRS BETWEEN 5 AM AND 8 PM
     Route: 065
  2. INBRIJA [Suspect]
     Active Substance: LEVODOPA
     Indication: PARKINSON^S DISEASE
     Dosage: 84 MILLIGRAM, PRN, UP TO FIVE TIMES PER DAY
     Dates: start: 20191030

REACTIONS (6)
  - Drug ineffective [Unknown]
  - Visual impairment [Unknown]
  - Disturbance in attention [Unknown]
  - Cough [Unknown]
  - Device issue [Unknown]
  - Tremor [Unknown]

NARRATIVE: CASE EVENT DATE: 20191031
